FAERS Safety Report 20023725 (Version 1)
Quarter: 2021Q4

REPORT INFORMATION
  Report Type: Spontaneous
  Country: US (occurrence: US)
  Receive Date: 20211102
  Receipt Date: 20211102
  Transmission Date: 20220303
  Serious: No
  Sender: FDA-Public Use
  Company Number: US-BTGSP-US-BTGSP-21-0080

PATIENT
  Age: 41 Year
  Sex: Female

DRUGS (1)
  1. DIGIFAB [Suspect]
     Active Substance: OVINE DIGOXIN IMMUNE FAB
     Indication: Toxicity to various agents
     Dosage: 20 VIALS, SINGLE
     Route: 065
     Dates: start: 20210506, end: 20210506

REACTIONS (1)
  - Off label use [Recovered/Resolved]

NARRATIVE: CASE EVENT DATE: 20210506
